FAERS Safety Report 9518471 (Version 1)
Quarter: 2013Q3

REPORT INFORMATION
  Report Type: Spontaneous
  Country: US (occurrence: None)
  Receive Date: 20130910
  Receipt Date: 20130910
  Transmission Date: 20140515
  Serious: Yes (Hospitalization)
  Sender: FDA-Public Use
  Company Number: 2013P1018882

PATIENT
  Age: 57 Year
  Sex: Female
  Weight: 153.32 kg

DRUGS (6)
  1. AZO STANDARD [Suspect]
     Indication: URINARY TRACT INFECTION
     Dosage: 2 TABLETS
     Route: 048
     Dates: start: 201010, end: 2010
  2. ENALAPRIL [Concomitant]
  3. HALDOL [Concomitant]
  4. LITHIUM [Concomitant]
  5. METFORMIN [Concomitant]
  6. ASA [Concomitant]

REACTIONS (8)
  - Abdominal pain [None]
  - Disorientation [None]
  - Thinking abnormal [None]
  - Abnormal behaviour [None]
  - Renal failure [None]
  - Dialysis [None]
  - Memory impairment [None]
  - Drug ineffective [None]
